FAERS Safety Report 25849999 (Version 1)
Quarter: 2025Q3

REPORT INFORMATION
  Report Type: Spontaneous
  Country: US (occurrence: US)
  Receive Date: 20250926
  Receipt Date: 20250926
  Transmission Date: 20251021
  Serious: No
  Sender: BIOGEN
  Company Number: US-BIOGEN-2024BI01249770

PATIENT
  Sex: Female

DRUGS (19)
  1. AVONEX [Suspect]
     Active Substance: INTERFERON BETA-1A
     Indication: Multiple sclerosis
     Dosage: INJECT 30 MCG (1 PEN) INTRAMUSCULARLY ONCE WEEKLY. ROTATE INJECTION SITE
     Route: 050
     Dates: start: 19980611
  2. AVONEX [Suspect]
     Active Substance: INTERFERON BETA-1A
  3. AVONEX [Suspect]
     Active Substance: INTERFERON BETA-1A
  4. AVONEX [Suspect]
     Active Substance: INTERFERON BETA-1A
  5. SERTRALINE HYDROCHLORIDE [Concomitant]
     Active Substance: SERTRALINE HYDROCHLORIDE
     Route: 050
  6. ATORVASTATIN CALCIUM [Concomitant]
     Active Substance: ATORVASTATIN CALCIUM
     Route: 050
  7. DONEPEZIL HYDROCHLORIDE [Concomitant]
     Active Substance: DONEPEZIL HYDROCHLORIDE
     Route: 050
  8. FISH OIL [Concomitant]
     Active Substance: FISH OIL
     Route: 050
  9. VITAMIN E BLEND [Concomitant]
     Route: 050
  10. ZOLPIDEM TARTRATE [Concomitant]
     Active Substance: ZOLPIDEM TARTRATE
     Route: 050
  11. VITAMIN D3 [Concomitant]
     Active Substance: CHOLECALCIFEROL
     Route: 050
  12. ASPIRIN [Concomitant]
     Active Substance: ASPIRIN
     Route: 050
  13. AMANTADINE HYDROCHLORIDE [Concomitant]
     Active Substance: AMANTADINE HYDROCHLORIDE
     Route: 050
  14. FOLIC ACID [Concomitant]
     Active Substance: FOLIC ACID
     Route: 050
  15. DULOXETINE HYDROCHLORIDE [Concomitant]
     Active Substance: DULOXETINE HYDROCHLORIDE
     Route: 050
  16. GLIPIZIDE [Concomitant]
     Active Substance: GLIPIZIDE
     Route: 050
  17. BACLOFEN [Concomitant]
     Active Substance: BACLOFEN
     Route: 050
  18. LOSARTAN POTASSIUM [Concomitant]
     Active Substance: LOSARTAN POTASSIUM
     Route: 050
  19. AMLODIPINE BESYLATE [Concomitant]
     Active Substance: AMLODIPINE BESYLATE
     Route: 050

REACTIONS (5)
  - Feeling abnormal [Unknown]
  - Gait disturbance [Unknown]
  - Tension [Unknown]
  - Fatigue [Unknown]
  - Dizziness [Unknown]
